FAERS Safety Report 9964789 (Version 1)
Quarter: 2014Q1

REPORT INFORMATION
  Report Type: Spontaneous
  Country: US (occurrence: US)
  Receive Date: 20140305
  Receipt Date: 20140305
  Transmission Date: 20141002
  Serious: No
  Sender: FDA-Public Use
  Company Number: US-AMGEN-USASP2014001992

PATIENT
  Age: 21 Year
  Sex: Female

DRUGS (4)
  1. ENBREL [Suspect]
     Indication: PRODUCT USED FOR UNKNOWN INDICATION
     Dosage: 25 MG, 2 TIMES/WK
     Route: 058
  2. VOLTAREN                           /00372301/ [Concomitant]
     Dosage: 50 MG, UNK
  3. JUNEL [Concomitant]
     Dosage: 1/20, UNK
  4. SULFASALAZIN [Concomitant]
     Dosage: 500 MG, UNK

REACTIONS (1)
  - Drug effect decreased [Unknown]
